FAERS Safety Report 8343923-3 (Version None)
Quarter: 2012Q2

REPORT INFORMATION
  Report Type: 
  Country: None (occurrence: None)
  Receive Date: 20120508
  Receipt Date: 20120501
  Transmission Date: 20120825
  Serious: Yes (Disabling)
  Sender: FDA-Public Use
  Company Number: US-BAYER-2012-006511

PATIENT
  Age: 18 Year
  Sex: Female
  Weight: 54 kg

DRUGS (5)
  1. YASMIN [Suspect]
     Indication: MENORRHAGIA
  2. YAZ [Suspect]
     Dosage: UNK
     Dates: start: 20060101, end: 20091101
  3. YASMIN [Suspect]
     Indication: MENSTRUATION IRREGULAR
     Dosage: UNK
     Dates: start: 20060101, end: 20091101
  4. IBUPROFEN [Concomitant]
  5. ASPIRIN [Concomitant]
     Dosage: 225 MG,DAILY
     Dates: start: 20080501

REACTIONS (5)
  - EMOTIONAL DISTRESS [None]
  - INJURY [None]
  - TRANSIENT ISCHAEMIC ATTACK [None]
  - PAIN [None]
  - ANXIETY [None]
